FAERS Safety Report 12587368 (Version 1)
Quarter: 2016Q3

REPORT INFORMATION
  Report Type: Spontaneous
  Country: PK (occurrence: PK)
  Receive Date: 20160725
  Receipt Date: 20160725
  Transmission Date: 20161109
  Serious: Yes (Disabling)
  Sender: FDA-Public Use
  Company Number: PK-SA-2016SA132222

PATIENT
  Age: 60 Year
  Sex: Male

DRUGS (1)
  1. AMARYL [Suspect]
     Active Substance: GLIMEPIRIDE
     Indication: HYPERGLYCAEMIA
     Route: 048

REACTIONS (3)
  - Hypoglycaemia [Not Recovered/Not Resolved]
  - Hyperglycaemia [Not Recovered/Not Resolved]
  - Hemiparesis [Not Recovered/Not Resolved]
